FAERS Safety Report 8789743 (Version 1)
Quarter: 2012Q4

REPORT INFORMATION
  Report Type: Spontaneous
  Country: US (occurrence: None)
  Receive Date: 20120905
  Receipt Date: 20120905
  Transmission Date: 20130627
  Serious: Yes (Hospitalization, Other)
  Sender: FDA-Public Use
  Company Number: 2012P1055622

PATIENT
  Age: 31 Year
  Sex: Female

DRUGS (11)
  1. REGLAN [Suspect]
     Indication: PAIN
     Route: 048
  2. MORPHINE [Suspect]
     Indication: PAIN
     Route: 048
  3. COMPAZINE [Suspect]
     Indication: NAUSEA
     Route: 048
  4. INAPSINE [Suspect]
  5. IBUPROFEN [Suspect]
  6. LIPITOR [Suspect]
     Indication: HIGH CHOLESTEROL
     Route: 048
     Dates: start: 200810, end: 200903
  7. LIPITOR [Suspect]
     Indication: HIGH CHOLESTEROL
     Dates: start: 200904
  8. CODEINE [Suspect]
     Indication: PAIN
  9. ZOLOFT [Suspect]
     Route: 048
     Dates: end: 2011
  10. DANAZOL [Suspect]
  11. DILANTIN [Suspect]
     Indication: EPILEPSY

REACTIONS (32)
  - Swollen tongue [None]
  - Drug hypersensitivity [None]
  - Abdominal pain [None]
  - Pain [None]
  - Chest pain [None]
  - Drug eruption [None]
  - Malaise [None]
  - Vomiting [None]
  - Complement factor C4 decreased [None]
  - C1 esterase inhibitor decreased [None]
  - Aldolase increased [None]
  - Haptoglobin increased [None]
  - Transferrin saturation decreased [None]
  - Protein total decreased [None]
  - Hypoalbuminaemia [None]
  - Pulmonary embolism [None]
  - Pneumonitis [None]
  - Nephrolithiasis [None]
  - Hiatus hernia [None]
  - Blood cholesterol increased [None]
  - Respiratory distress [None]
  - Pancreatitis [None]
  - Gastrooesophageal reflux disease [None]
  - Cellulitis [None]
  - Duodenitis [None]
  - Ileus [None]
  - Urinary tract infection [None]
  - Hereditary angioedema [None]
  - Liver function test abnormal [None]
  - International normalised ratio decreased [None]
  - Biliary dilatation [None]
  - Refusal of treatment by patient [None]
